FAERS Safety Report 5399091-3 (Version None)
Quarter: 2007Q3

REPORT INFORMATION
  Report Type: 
  Country: None (occurrence: None)
  Receive Date: 20070725
  Receipt Date: 20070725
  Transmission Date: 20080115
  Serious: Yes (Death)
  Sender: FDA-Public Use
  Company Number: None

PATIENT
  Age: 49 Year
  Sex: Female
  Weight: 98 kg

DRUGS (4)
  1. ZOMETA [Suspect]
     Indication: OSTEOPOROSIS
     Dosage: 4MG Q12 WEEKS IV
     Route: 042
     Dates: start: 20061212
  2. ZOMETA [Suspect]
     Indication: OSTEOPOROSIS
     Dosage: 4MG Q12 WEEKS IV
     Route: 042
     Dates: start: 20070306
  3. KEPPRA [Concomitant]
  4. MORPHINE SULFATE [Concomitant]

REACTIONS (4)
  - ENCEPHALITIS [None]
  - INFECTION [None]
  - LOSS OF CONSCIOUSNESS [None]
  - MENINGITIS [None]
